FAERS Safety Report 8900402 (Version 1)
Quarter: 2012Q4

REPORT INFORMATION
  Report Type: 
  Country: US (occurrence: US)
  Receive Date: 20121109
  Receipt Date: 20121109
  Transmission Date: 20130627
  Serious: Yes (Other)
  Sender: FDA-Public Use
  Company Number: US-JNJFOC-20120603748

PATIENT
  Sex: Male
  Weight: 76.2 kg

DRUGS (4)
  1. RISPERDAL [Suspect]
     Indication: AGGRESSION
     Route: 048
     Dates: start: 2006, end: 201201
  2. RISPERDAL [Suspect]
     Indication: ATTENTION DEFICIT/HYPERACTIVITY DISORDER
     Route: 048
     Dates: start: 2006, end: 201201
  3. RISPERDAL [Suspect]
     Indication: BIPOLAR DISORDER
     Route: 048
     Dates: start: 2006, end: 201201
  4. RISPERDAL [Suspect]
     Indication: DEPRESSION
     Route: 048
     Dates: start: 2006, end: 201201

REACTIONS (6)
  - Breast pain [Unknown]
  - Gynaecomastia [Recovering/Resolving]
  - Glucose tolerance impaired [Unknown]
  - Weight increased [Unknown]
  - Alopecia [Unknown]
  - Somnolence [Unknown]
